FAERS Safety Report 7391607-0 (Version None)
Quarter: 2011Q2

REPORT INFORMATION
  Report Type: 
  Country: None (occurrence: None)
  Receive Date: 20110404
  Receipt Date: 20110328
  Transmission Date: 20111010
  Serious: Yes (Other)
  Sender: FDA-Public Use
  Company Number: AU-PFIZER INC-2011069206

PATIENT
  Sex: Male

DRUGS (2)
  1. XYNTHA [Suspect]
     Dosage: UNK
     Dates: start: 20100601
  2. REFACTO [Suspect]
     Dosage: UNK
     Dates: start: 20101001

REACTIONS (1)
  - FACTOR VIII INHIBITION [None]
